FAERS Safety Report 9462041 (Version 1)
Quarter: 2013Q3

REPORT INFORMATION
  Report Type: Spontaneous
  Country: FR (occurrence: FR)
  Receive Date: 20130816
  Receipt Date: 20130816
  Transmission Date: 20140515
  Serious: Yes (Hospitalization)
  Sender: FDA-Public Use
  Company Number: FR-ASTRAZENECA-2013SE62512

PATIENT
  Age: 23477 Day
  Sex: Female

DRUGS (5)
  1. CARBOCAINE [Suspect]
     Indication: NERVE BLOCK
     Route: 042
     Dates: start: 20130620, end: 20130620
  2. NAROPEINE [Suspect]
     Indication: NERVE BLOCK
     Route: 042
     Dates: start: 20130620, end: 20130620
  3. LIDOCAINE ADRENALINE [Suspect]
     Indication: NERVE BLOCK
     Route: 042
     Dates: start: 20130620, end: 20130620
  4. CEFAMANDOLE PANPHARMA [Suspect]
     Indication: ANTIBIOTIC PROPHYLAXIS
     Route: 042
     Dates: start: 20130620, end: 20130620
  5. MIDAZOLAM PANPHARMA [Suspect]
     Indication: INDUCTION OF ANAESTHESIA
     Route: 042
     Dates: start: 20130620, end: 20130620

REACTIONS (2)
  - Generalised erythema [Recovered/Resolved]
  - Sinus tachycardia [Recovered/Resolved]
